FAERS Safety Report 5526194-2 (Version None)
Quarter: 2007Q4

REPORT INFORMATION
  Report Type: 
  Country: None (occurrence: None)
  Receive Date: 20071120
  Receipt Date: 20071113
  Transmission Date: 20080405
  Serious: Yes (Other)
  Sender: FDA-Public Use
  Company Number: 144-C5013-07060294

PATIENT
  Age: 64 Year
  Sex: Female

DRUGS (5)
  1. CC-5013 (LENALIDOMIDE) (CAPSULES) [Suspect]
     Indication: MYELODYSPLASTIC SYNDROME
     Dosage: 10 MG, DAILY, ORAL; 5 MG, DAILY, ORAL; 5 MG, DAILY, ORAL
     Route: 048
     Dates: start: 20070411, end: 20070524
  2. CC-5013 (LENALIDOMIDE) (CAPSULES) [Suspect]
     Indication: MYELODYSPLASTIC SYNDROME
     Dosage: 10 MG, DAILY, ORAL; 5 MG, DAILY, ORAL; 5 MG, DAILY, ORAL
     Route: 048
     Dates: start: 20070628, end: 20070705
  3. CC-5013 (LENALIDOMIDE) (CAPSULES) [Suspect]
     Indication: MYELODYSPLASTIC SYNDROME
     Dosage: 10 MG, DAILY, ORAL; 5 MG, DAILY, ORAL; 5 MG, DAILY, ORAL
     Route: 048
     Dates: start: 20070920
  4. CIPROFLOXACIN [Concomitant]
  5. ITRACONAZOLE [Concomitant]

REACTIONS (5)
  - HERPES VIRUS INFECTION [None]
  - LEUKOPENIA [None]
  - NEUTROPENIA [None]
  - STOMATITIS [None]
  - THROMBOCYTOPENIA [None]
